FAERS Safety Report 5745015-6 (Version None)
Quarter: 2008Q2

REPORT INFORMATION
  Report Type: 
  Country: None (occurrence: None)
  Receive Date: 20080521
  Receipt Date: 20080512
  Transmission Date: 20081010
  Serious: Yes (Hospitalization)
  Sender: FDA-Public Use
  Company Number: PHHY2008CN07733

PATIENT

DRUGS (1)
  1. LESCOL [Suspect]
     Dosage: 40 MG/ DAY
     Route: 048

REACTIONS (2)
  - MUSCULAR WEAKNESS [None]
  - MYASTHENIA GRAVIS [None]
